FAERS Safety Report 4829525-1 (Version None)
Quarter: 2005Q4

REPORT INFORMATION
  Report Type: 
  Country: None (occurrence: None)
  Receive Date: 20051116
  Receipt Date: 20051027
  Transmission Date: 20060501
  Serious: Yes (Other)
  Sender: FDA-Public Use
  Company Number: PHFR2005GB03550

PATIENT
  Age: 50 Year
  Sex: Female

DRUGS (1)
  1. CLOZARIL [Suspect]
     Indication: SCHIZOPHRENIA
     Dosage: 250MG DAILY
     Route: 048
     Dates: start: 20050920, end: 20051027

REACTIONS (2)
  - CARDIAC DISORDER [None]
  - CHEST PAIN [None]
